FAERS Safety Report 8554059-0 (Version None)
Quarter: 2012Q3

REPORT INFORMATION
  Report Type: 
  Country: None (occurrence: None)
  Receive Date: 20120731
  Receipt Date: 20120725
  Transmission Date: 20120928
  Serious: Yes (Other)
  Sender: FDA-Public Use
  Company Number: US-TEVA-350653USA

PATIENT
  Sex: Female

DRUGS (2)
  1. YAZ [Concomitant]
     Dates: start: 20120524
  2. CLARAVIS [Suspect]
     Dosage: 40 MILLIGRAM;
     Dates: start: 20120701, end: 20120724

REACTIONS (3)
  - ABORTION SPONTANEOUS [None]
  - UNINTENDED PREGNANCY [None]
  - MATERNAL DRUGS AFFECTING FOETUS [None]
